FAERS Safety Report 14595298 (Version 1)
Quarter: 2018Q1

REPORT INFORMATION
  Report Type: Spontaneous
  Country: US (occurrence: US)
  Receive Date: 20180302
  Receipt Date: 20180302
  Transmission Date: 20180509
  Serious: No
  Sender: FDA-Public Use
  Company Number: US-AKORN PHARMACEUTICALS-2017AKN01515

PATIENT
  Sex: Female
  Weight: 54.42 kg

DRUGS (3)
  1. MYORISAN [Suspect]
     Active Substance: ISOTRETINOIN
     Indication: ACNE
     Dosage: 40 MG, UNK
     Route: 048
     Dates: start: 20171116, end: 20171219
  2. MIRENA [Concomitant]
     Active Substance: LEVONORGESTREL
  3. MYORISAN [Suspect]
     Active Substance: ISOTRETINOIN
     Indication: ACNE
     Dosage: 60 MG, UNK
     Route: 048
     Dates: start: 20171017, end: 20171116

REACTIONS (2)
  - Headache [Unknown]
  - Back pain [Recovered/Resolved]

NARRATIVE: CASE EVENT DATE: 2017
